FAERS Safety Report 6820333-9 (Version None)
Quarter: 2010Q3

REPORT INFORMATION
  Report Type: 
  Country: None (occurrence: None)
  Receive Date: 20100707
  Receipt Date: 20100623
  Transmission Date: 20110219
  Serious: Yes (Other)
  Sender: FDA-Public Use
  Company Number: PHEH2006US10970

PATIENT
  Sex: Female
  Weight: 86.168 kg

DRUGS (15)
  1. AREDIA [Suspect]
     Dosage: 90 MG Q4W
     Route: 042
     Dates: start: 20031105, end: 20050105
  2. ZOMETA [Suspect]
     Dosage: 4 MG, QW4
     Dates: start: 20050203
  3. FEMARA [Concomitant]
     Dosage: 2.5 MG, QD
     Route: 048
  4. DEXAMETHASONE [Concomitant]
     Dosage: 10 MG Q4W
     Route: 042
     Dates: start: 20031105
  5. COENZYME Q10 [Concomitant]
  6. GARLIC [Concomitant]
  7. DIGESTIVE ENZYMES [Concomitant]
  8. SELENIUM [Concomitant]
  9. MULTI-VITAMINS [Concomitant]
  10. LETROZOLE [Concomitant]
  11. EXEMESTANE [Concomitant]
     Dosage: 25 MG, QD
  12. MECLIZINE [Concomitant]
  13. CELEBREX [Concomitant]
     Dosage: 200 MG, QD
  14. CHEMOTHERAPEUTICS NOS [Concomitant]
  15. RISEDRONATE SODIUM [Concomitant]
     Dosage: 35 MG, QW
     Route: 048

REACTIONS (39)
  - ANHEDONIA [None]
  - ANXIETY [None]
  - ARACHNOID CYST [None]
  - ARTHRALGIA [None]
  - BONE DISORDER [None]
  - BRUXISM [None]
  - CENTRAL VENOUS CATHETERISATION [None]
  - CHOLELITHIASIS [None]
  - CHROMATURIA [None]
  - DECREASED INTEREST [None]
  - DIZZINESS [None]
  - DRY EYE [None]
  - DRY MOUTH [None]
  - FATIGUE [None]
  - GENERAL PHYSICAL HEALTH DETERIORATION [None]
  - GLOSSITIS [None]
  - HYPERHIDROSIS [None]
  - HYPOAESTHESIA ORAL [None]
  - INFLUENZA LIKE ILLNESS [None]
  - LOSS OF CONSCIOUSNESS [None]
  - METASTASES TO BONE [None]
  - METASTASES TO LIVER [None]
  - MOUTH ULCERATION [None]
  - MYALGIA [None]
  - NOCTURIA [None]
  - OSTEONECROSIS OF JAW [None]
  - PAIN [None]
  - PAIN IN EXTREMITY [None]
  - PAIN IN JAW [None]
  - PALPITATIONS [None]
  - POLLAKIURIA [None]
  - RASH [None]
  - SJOGREN'S SYNDROME [None]
  - SWOLLEN TONGUE [None]
  - SYNCOPE [None]
  - TONGUE ULCERATION [None]
  - TOOTH REPAIR [None]
  - TOOTHACHE [None]
  - VERTIGO [None]
